FAERS Safety Report 14187668 (Version 1)
Quarter: 2017Q4

REPORT INFORMATION
  Report Type: Report from Study
  Country: US (occurrence: US)
  Receive Date: 20171114
  Receipt Date: 20171114
  Transmission Date: 20180321
  Serious: Yes (Other)
  Sender: FDA-Public Use
  Company Number: US-ROCHE-2019008

PATIENT
  Sex: Male

DRUGS (4)
  1. RIBAVIRIN. [Suspect]
     Active Substance: RIBAVIRIN
     Indication: PAPILLOMA VIRAL INFECTION
     Dosage: PATIENTS WHO WEIGHED {/= 75 KG RECEIVED RIBAVIRIN 1000 MG/DAY ORALLY (400 MG IN THE MORNING AND 600
     Route: 048
  2. PACLITAXEL. [Suspect]
     Active Substance: PACLITAXEL
     Indication: OROPHARYNGEAL SQUAMOUS CELL CARCINOMA
     Route: 015
  3. CARBOPLATIN. [Suspect]
     Active Substance: CARBOPLATIN
     Indication: OROPHARYNGEAL SQUAMOUS CELL CARCINOMA
     Dosage: AUC 1.5 INTRAVENOUSLY WITH A MAXIMUM FLAT DOSE 225 MG
     Route: 042
  4. AFATINIB [Suspect]
     Active Substance: AFATINIB
     Indication: OROPHARYNGEAL SQUAMOUS CELL CARCINOMA
     Route: 048

REACTIONS (4)
  - Syncope [Unknown]
  - Diarrhoea [Unknown]
  - White blood cell count decreased [Unknown]
  - Neutropenia [Unknown]
